FAERS Safety Report 24316257 (Version 4)
Quarter: 2024Q4

REPORT INFORMATION
  Report Type: Report from Study
  Country: US (occurrence: US)
  Receive Date: 20240913
  Receipt Date: 20241107
  Transmission Date: 20250115
  Serious: Yes (Hospitalization)
  Sender: ABBVIE
  Company Number: US-ABBVIE-5916772

PATIENT
  Age: 58 Year
  Sex: Male

DRUGS (4)
  1. SKYRIZI [Suspect]
     Active Substance: RISANKIZUMAB-RZAA
     Indication: Psoriasis
     Dosage: DOSAGE: 150 MG/ML STRENGTH  150 MG/ML AT WEEK 0
     Route: 058
     Dates: start: 20240731, end: 20240731
  2. SKYRIZI [Suspect]
     Active Substance: RISANKIZUMAB-RZAA
     Dosage: DOSAGE: 150 MG/ML STRENGTH  150 MG/ML AT WEEK 4. THEN EVERY 12 WEEKS
     Route: 058
     Dates: start: 20240828, end: 20240828
  3. DUPIXENT [Concomitant]
     Active Substance: DUPILUMAB
     Indication: Product used for unknown indication
     Dosage: PEN
  4. AMLODIPINE [Concomitant]
     Active Substance: AMLODIPINE BESYLATE
     Indication: Product used for unknown indication

REACTIONS (1)
  - Diverticulitis [Recovering/Resolving]

NARRATIVE: CASE EVENT DATE: 20240904
